FAERS Safety Report 4947492-7 (Version None)
Quarter: 2006Q1

REPORT INFORMATION
  Report Type: 
  Country: None (occurrence: None)
  Receive Date: 20060313
  Receipt Date: 20060227
  Transmission Date: 20060701
  Serious: Yes (Other)
  Sender: FDA-Public Use
  Company Number: 2006029053

PATIENT
  Age: 55 Year
  Sex: Male
  Weight: 99.7913 kg

DRUGS (12)
  1. CELEBREX [Suspect]
     Indication: ARTHRITIS
     Dates: start: 20000101
  2. LIPITOR [Suspect]
     Indication: BLOOD CHOLESTEROL
     Dates: start: 20041101, end: 20041201
  3. CYTOTEC [Concomitant]
  4. TRICOR [Concomitant]
  5. TYLENOL (PARCETAMOL) [Concomitant]
  6. ARTHROTEC [Suspect]
     Indication: ARTHRITIS
     Dates: start: 20050615, end: 20050619
  7. BEXTRA [Suspect]
     Indication: ARTHRITIS
     Dosage: 20 MG (20 MG, 1 IN 1 D),
     Dates: start: 20020101, end: 20041101
  8. ZETIA [Suspect]
     Indication: BLOOD CHOLESTEROL INCREASED
     Dosage: 10 MG (DAILY),
     Dates: start: 20050715, end: 20050816
  9. VIOXX [Suspect]
     Indication: ARTHRITIS
  10. AMBIEN [Concomitant]
  11. VITAMINS (VITAMINS) [Concomitant]
  12. CHONDROITIN/GLUCOSAMINE (CHONDROITIN, GLUCOSAMINE) [Concomitant]

REACTIONS (12)
  - ABNORMAL FAECES [None]
  - ASPARTATE AMINOTRANSFERASE INCREASED [None]
  - BLOOD ALKALINE PHOSPHATASE INCREASED [None]
  - BLOOD BILIRUBIN INCREASED [None]
  - BLOOD TRIGLYCERIDES INCREASED [None]
  - CHROMATURIA [None]
  - FLUID RETENTION [None]
  - HAEMATOCHEZIA [None]
  - LIVER DISORDER [None]
  - OEDEMA PERIPHERAL [None]
  - POLYP [None]
  - STOMACH DISCOMFORT [None]
